FAERS Safety Report 7351933-8 (Version None)
Quarter: 2011Q1

REPORT INFORMATION
  Report Type: 
  Country: None (occurrence: None)
  Receive Date: 20110315
  Receipt Date: 20100813
  Transmission Date: 20110831
  Serious: Yes (Hospitalization)
  Sender: FDA-Public Use
  Company Number: US-BAYER-201010628NA

PATIENT
  Sex: Female
  Weight: 72.727 kg

DRUGS (2)
  1. PRILOSEC [Concomitant]
     Route: 065
  2. YAZ [Suspect]
     Indication: CONTRACEPTION
     Route: 048
     Dates: start: 20070409, end: 20091026

REACTIONS (6)
  - VOMITING [None]
  - CHOLELITHIASIS [None]
  - CHOLECYSTITIS CHRONIC [None]
  - NAUSEA [None]
  - ABDOMINAL PAIN UPPER [None]
  - ABDOMINAL PAIN [None]
